FAERS Safety Report 18485670 (Version 1)
Quarter: 2020Q4

REPORT INFORMATION
  Report Type: Spontaneous
  Country: US (occurrence: US)
  Receive Date: 20201110
  Receipt Date: 20201110
  Transmission Date: 20210114
  Serious: No
  Sender: FDA-Public Use
  Company Number: US-ASTRAZENECA-2020SF39278

PATIENT
  Age: 74 Year
  Sex: Female
  Weight: 59 kg

DRUGS (1)
  1. BYDUREON BCISE [Suspect]
     Active Substance: EXENATIDE
     Indication: DIABETES MELLITUS
     Route: 058
     Dates: start: 2019

REACTIONS (7)
  - Drug dose omission by device [Unknown]
  - Incorrect dose administered by device [Unknown]
  - Device leakage [Unknown]
  - Injection site extravasation [Unknown]
  - Visual impairment [Unknown]
  - Injection site mass [Not Recovered/Not Resolved]
  - Wrong technique in device usage process [Unknown]

NARRATIVE: CASE EVENT DATE: 2019
